FAERS Safety Report 13632574 (Version 3)
Quarter: 2017Q3

REPORT INFORMATION
  Report Type: Report from Study
  Country: CO (occurrence: CO)
  Receive Date: 20170608
  Receipt Date: 20170724
  Transmission Date: 20171127
  Serious: Yes (Life-Threatening, Hospitalization, Disabling, Other)
  Sender: FDA-Public Use
  Company Number: PHHY2017CO029199

PATIENT
  Age: 83 Year
  Sex: Male
  Weight: 78 kg

DRUGS (15)
  1. ACETAMINOPHEN. [Concomitant]
     Active Substance: ACETAMINOPHEN
     Indication: PRODUCT USED FOR UNKNOWN INDICATION
     Route: 065
  2. DITEMER [Concomitant]
     Indication: PRODUCT USED FOR UNKNOWN INDICATION
     Dosage: 100 UI/ML (15 UI AT NIGHT)
     Route: 065
  3. ATORVASTATIN [Suspect]
     Active Substance: ATORVASTATIN
     Indication: PRODUCT USED FOR UNKNOWN INDICATION
     Dosage: 40 MG, QHS
     Route: 065
  4. TAMSULOSIN [Suspect]
     Active Substance: TAMSULOSIN
     Indication: PRODUCT USED FOR UNKNOWN INDICATION
     Dosage: 1 DF, QHS (1EVERY NIGHT)
     Route: 061
  5. ESOMEPRAZOLE [Concomitant]
     Active Substance: ESOMEPRAZOLE
     Indication: PRODUCT USED FOR UNKNOWN INDICATION
     Dosage: 40 MG, QD (IN THE MORNING)
     Route: 065
  6. PALEXIS [Concomitant]
     Indication: PRODUCT USED FOR UNKNOWN INDICATION
     Route: 065
  7. CARVEDILOL. [Concomitant]
     Active Substance: CARVEDILOL
     Indication: PRODUCT USED FOR UNKNOWN INDICATION
     Dosage: 6.25 MG, QHS (1 EVERY NIGHT)
     Route: 065
  8. FUROSEMIDE. [Concomitant]
     Active Substance: FUROSEMIDE
     Indication: PRODUCT USED FOR UNKNOWN INDICATION
     Dosage: 40 MG, QD
     Route: 065
  9. INSULIN GLULISINE [Concomitant]
     Active Substance: INSULIN GLULISINE
     Indication: PRODUCT USED FOR UNKNOWN INDICATION
     Dosage: 100 UI/ML (5 UNITS EVERY MEAL ACCORDING TO GLYCEMIC INDEX AND GLUCOMETER)
     Route: 065
  10. JAKAVI [Suspect]
     Active Substance: RUXOLITINIB
     Indication: PRIMARY MYELOFIBROSIS
     Dosage: 5 MG, QID
     Route: 048
     Dates: start: 20130201
  11. DICLOFENAC [Suspect]
     Active Substance: DICLOFENAC
     Indication: PAIN
     Dosage: 4 G, BID
     Route: 061
  12. PREGABALIN. [Suspect]
     Active Substance: PREGABALIN
     Indication: PRODUCT USED FOR UNKNOWN INDICATION
     Dosage: 75 MG, (1 CAPSULE IN MORNING AND 2 CAPSULES AT NIGHT)
     Route: 048
  13. PAREXIS [Concomitant]
     Indication: PRODUCT USED FOR UNKNOWN INDICATION
     Route: 065
  14. MORPHINE [Concomitant]
     Active Substance: MORPHINE
     Indication: PRODUCT USED FOR UNKNOWN INDICATION
     Route: 065
  15. DESITIN [Concomitant]
     Active Substance: ZINC OXIDE
     Indication: PRODUCT USED FOR UNKNOWN INDICATION
     Dosage: UNK UNK, TID
     Route: 065

REACTIONS (39)
  - Platelet count decreased [Recovering/Resolving]
  - Vomiting [Unknown]
  - Diabetic neuropathy [Unknown]
  - Anaemia [Unknown]
  - Chronic gastritis [Unknown]
  - Noninfective gingivitis [Unknown]
  - Urinary incontinence [Unknown]
  - Syncope [Unknown]
  - Dysarthria [Unknown]
  - Anal incontinence [Unknown]
  - Coronary artery disease [Unknown]
  - Neuralgia [Unknown]
  - Disorientation [Unknown]
  - Anal haemorrhage [Unknown]
  - Gastric ulcer [Unknown]
  - Cardiac failure [Unknown]
  - Dysphagia [Unknown]
  - Mouth haemorrhage [Unknown]
  - Eating disorder [Unknown]
  - Pain [Unknown]
  - Stomatitis [Unknown]
  - Oropharyngeal pain [Unknown]
  - Gastrointestinal haemorrhage [Recovered/Resolved]
  - Ischaemic cardiomyopathy [Unknown]
  - Chronic myeloid leukaemia [Unknown]
  - Decubitus ulcer [Unknown]
  - Hypertension [Unknown]
  - Oral disorder [Unknown]
  - Pharyngeal disorder [Unknown]
  - Walking disability [Unknown]
  - Paraneoplastic syndrome [Unknown]
  - Gastric disorder [Unknown]
  - Mallory-Weiss syndrome [Unknown]
  - Soft tissue disorder [Unknown]
  - Benign prostatic hyperplasia [Unknown]
  - Hiatus hernia [Unknown]
  - Dependent personality disorder [Unknown]
  - Diabetic complication [Unknown]
  - Hypotonia [Unknown]

NARRATIVE: CASE EVENT DATE: 2013
